FAERS Safety Report 11415988 (Version 1)
Quarter: 2015Q3

REPORT INFORMATION
  Report Type: Spontaneous
  Country: IT (occurrence: IT)
  Receive Date: 20150825
  Receipt Date: 20150825
  Transmission Date: 20151125
  Serious: Yes (Hospitalization)
  Sender: FDA-Public Use
  Company Number: IT-BAYER-2015-404015

PATIENT
  Age: 59 Year
  Sex: Female

DRUGS (7)
  1. SELOKEN [Concomitant]
     Active Substance: METOPROLOL
     Route: 048
  2. RAMIPRIL. [Concomitant]
     Active Substance: RAMIPRIL
     Route: 048
  3. TAVOR [LORAZEPAM] [Concomitant]
     Active Substance: LORAZEPAM
     Dosage: DAILY DOSE 2.5 MG
     Route: 048
  4. PLAVIX [Suspect]
     Active Substance: CLOPIDOGREL BISULFATE
     Indication: ISCHAEMIC HEART DISEASE PROPHYLAXIS
     Dosage: DAILY DOSE 1 DF
     Route: 048
     Dates: start: 20150101, end: 20150525
  5. PANTORC [Concomitant]
     Active Substance: PANTOPRAZOLE SODIUM
     Dosage: DAILY DOSE 40 MG
     Route: 048
  6. NOVONORM [Concomitant]
     Active Substance: REPAGLINIDE
     Dosage: DAILY DOSE 3 MG
     Route: 048
  7. CARDIOASPIRIN [Suspect]
     Active Substance: ASPIRIN
     Indication: ISCHAEMIC HEART DISEASE PROPHYLAXIS
     Dosage: DAILY DOSE 100 MG
     Route: 048
     Dates: start: 20150101, end: 20150525

REACTIONS (2)
  - Strangury [Unknown]
  - Haematuria [Unknown]

NARRATIVE: CASE EVENT DATE: 20150525
